FAERS Safety Report 17477453 (Version 1)
Quarter: 2020Q1

REPORT INFORMATION
  Report Type: Spontaneous
  Country: US (occurrence: US)
  Receive Date: 20200228
  Receipt Date: 20200228
  Transmission Date: 20200409
  Serious: Yes (Hospitalization, Other)
  Sender: FDA-Public Use
  Company Number: US-FRESENIUS KABI-FK202002032

PATIENT
  Age: 66 Year
  Sex: Male

DRUGS (1)
  1. FLUOROURACIL (MANUFACTURER UNKNOWN) [Suspect]
     Active Substance: FLUOROURACIL
     Indication: OESOPHAGEAL ADENOCARCINOMA STAGE IV
     Route: 065

REACTIONS (4)
  - Small intestinal obstruction [Unknown]
  - Crohn^s disease [Unknown]
  - Mucosal inflammation [Unknown]
  - Diarrhoea [Recovered/Resolved]
